FAERS Safety Report 9341306 (Version 3)
Quarter: 2013Q4

REPORT INFORMATION
  Report Type: Spontaneous
  Country: DE (occurrence: DE)
  Receive Date: 20130611
  Receipt Date: 20131121
  Transmission Date: 20140711
  Serious: Yes (Other)
  Sender: FDA-Public Use
  Company Number: DE-AMGEN-DEUSP2013040555

PATIENT
  Age: 76 Year
  Sex: Female
  Weight: 58 kg

DRUGS (12)
  1. PROLIA [Suspect]
     Indication: OSTEOPOROSIS POSTMENOPAUSAL
     Dosage: 60 MG, Q6MO
     Route: 058
     Dates: start: 20121015
  2. ATORVASTATIN [Concomitant]
     Dosage: 10 MG, QD
     Route: 048
  3. SULTANOL [Concomitant]
     Dosage: BID OR TID
     Route: 045
  4. ALVESCO [Concomitant]
     Dosage: UNK UNK, QD
     Route: 045
  5. PREDNISOLONE [Concomitant]
     Dosage: 2.5 MG, QD
  6. ARAVA [Concomitant]
  7. ASS [Concomitant]
     Dosage: 100 MG, QD
     Route: 048
  8. RAMILICH [Concomitant]
     Dosage: 1.25 MG, QD
     Route: 048
  9. VIGANTOLETTEN [Concomitant]
     Dosage: 1000 IE, QD
     Route: 048
  10. MTX                                /00113801/ [Concomitant]
     Dosage: 7.5 MG, QD
  11. FOLIC ACID [Concomitant]
     Dosage: 10 MG, QD
     Route: 048
  12. OEKOLP [Concomitant]
     Route: 067

REACTIONS (2)
  - Osteonecrosis of jaw [Not Recovered/Not Resolved]
  - Tooth disorder [Unknown]
